FAERS Safety Report 11972601 (Version 2)
Quarter: 2016Q2

REPORT INFORMATION
  Report Type: Spontaneous
  Country: US (occurrence: US)
  Receive Date: 20160128
  Receipt Date: 20160406
  Transmission Date: 20160815
  Serious: Yes (Hospitalization, Other)
  Sender: FDA-Public Use
  Company Number: US-BAYER-2016-015701

PATIENT
  Age: 31 Year
  Sex: Female

DRUGS (23)
  1. ONDANSETRON [Concomitant]
     Active Substance: ONDANSETRON
  2. MORPHINE [Concomitant]
     Active Substance: MORPHINE
  3. DEMEROL [Concomitant]
     Active Substance: MEPERIDINE HYDROCHLORIDE
  4. PITOCIN [Concomitant]
     Active Substance: OXYTOCIN
  5. OXYTOCIN. [Concomitant]
     Active Substance: OXYTOCIN
  6. FERROUS SULFATE. [Concomitant]
     Active Substance: FERROUS SULFATE
  7. MIRENA [Suspect]
     Active Substance: LEVONORGESTREL
     Indication: MENORRHAGIA
  8. ZOFRAN [Concomitant]
     Active Substance: ONDANSETRON HYDROCHLORIDE
  9. NORCO [Concomitant]
     Active Substance: ACETAMINOPHEN\HYDROCODONE BITARTRATE
  10. NARCAN [Concomitant]
     Active Substance: NALOXONE HYDROCHLORIDE
  11. PRENATAL VITAMINS [Concomitant]
     Active Substance: VITAMINS
  12. MOTRIN [Concomitant]
     Active Substance: IBUPROFEN
  13. MIRENA [Suspect]
     Active Substance: LEVONORGESTREL
     Indication: CONTRACEPTION
     Dosage: 20 MCG/24HR, CONT
     Route: 015
     Dates: start: 200802, end: 20150331
  14. PHENERGAN [Concomitant]
     Active Substance: PROMETHAZINE HYDROCHLORIDE
  15. COLACE [Suspect]
     Active Substance: DOCUSATE SODIUM
  16. NORCO [Concomitant]
     Active Substance: ACETAMINOPHEN\HYDROCODONE BITARTRATE
  17. BENADRYL [Concomitant]
     Active Substance: DIPHENHYDRAMINE HYDROCHLORIDE
  18. DILAUDID [Concomitant]
     Active Substance: HYDROMORPHONE HYDROCHLORIDE
     Dosage: 0.5 MG, UNK
  19. TORADOL [Concomitant]
     Active Substance: KETOROLAC TROMETHAMINE
     Dosage: 30 MG, UNK
  20. KETOROLAC [Concomitant]
     Active Substance: KETOROLAC\KETOROLAC TROMETHAMINE
  21. IBUPROFEN. [Concomitant]
     Active Substance: IBUPROFEN
  22. RESTORIL [Concomitant]
     Active Substance: TEMAZEPAM
  23. NUBAIN [Concomitant]
     Active Substance: NALBUPHINE HYDROCHLORIDE

REACTIONS (11)
  - Device use error [None]
  - Haematochezia [None]
  - Hypotension [None]
  - Procedural pain [Not Recovered/Not Resolved]
  - Uterine perforation [None]
  - Scar [None]
  - Peripheral swelling [None]
  - Caesarean section [None]
  - Pregnancy with contraceptive device [None]
  - Drug ineffective [None]
  - Abdominal pain [None]

NARRATIVE: CASE EVENT DATE: 201302
